FAERS Safety Report 7258912-X (Version None)
Quarter: 2011Q1

REPORT INFORMATION
  Report Type: 
  Country: None (occurrence: None)
  Receive Date: 20110129
  Receipt Date: 20100611
  Transmission Date: 20110831
  Serious: No
  Sender: FDA-Public Use
  Company Number: US-ABBOTT-10P-163-0651169-00

PATIENT
  Age: 59 Year
  Sex: Female

DRUGS (11)
  1. ASPIRIN [Concomitant]
     Indication: PRODUCT USED FOR UNKNOWN INDICATION
  2. HUMIRA [Suspect]
     Indication: RHEUMATOID ARTHRITIS
     Dates: start: 20091201
  3. PLAQUENIL [Concomitant]
     Indication: ARTHRITIS
  4. FORTEL [Concomitant]
     Indication: OSTEOARTHRITIS
  5. FOLIC ACID [Concomitant]
     Indication: PRODUCT USED FOR UNKNOWN INDICATION
  6. NEXIUM [Concomitant]
     Indication: GASTRIC DISORDER
  7. SUCRALFATE [Concomitant]
     Indication: GASTRIC DISORDER
  8. MTX [Concomitant]
     Indication: PRODUCT USED FOR UNKNOWN INDICATION
  9. PREDNISONE [Concomitant]
     Indication: ARTHRITIS
  10. FERROUS SULFATE TAB [Concomitant]
     Indication: PRODUCT USED FOR UNKNOWN INDICATION
  11. METOPROLOL [Concomitant]
     Indication: BLOOD PRESSURE

REACTIONS (1)
  - LACERATION [None]
